FAERS Safety Report 13665975 (Version 1)
Quarter: 2017Q2

REPORT INFORMATION
  Report Type: Spontaneous
  Country: PK (occurrence: PK)
  Receive Date: 20170619
  Receipt Date: 20170619
  Transmission Date: 20170830
  Serious: Yes (Hospitalization)
  Sender: FDA-Public Use
  Company Number: PK-BAUSCH-BL-2017-019494

PATIENT
  Age: 29 Year
  Sex: Male

DRUGS (4)
  1. 5-FLUOROURACIL [Suspect]
     Active Substance: FLUOROURACIL
     Indication: OESOPHAGEAL ADENOCARCINOMA
     Dosage: 1000 MG/M2 ADMINISTERED AS A 24 HOUR CONTINUOUS INFUSION FROM DAY ONE TO DAY FIVE
     Route: 041
  2. CISPLATIN. [Concomitant]
     Active Substance: CISPLATIN
     Indication: OESOPHAGEAL ADENOCARCINOMA
     Dosage: SIX CYCLES OF DOCETAXEL, CISPLATIN, AND 5-FLUOROURACIL (DCF)
  3. CARBOPLATIN. [Concomitant]
     Active Substance: CARBOPLATIN
     Indication: OESOPHAGEAL ADENOCARCINOMA
     Dosage: CARBOPLATIN AUC 5 ON DAY ONE
  4. DOCETAXEL. [Concomitant]
     Active Substance: DOCETAXEL
     Indication: OESOPHAGEAL ADENOCARCINOMA
     Dosage: SIX CYCLES OF DOCETAXEL, CISPLATIN, AND 5-FLUOROURACIL (DCF)

REACTIONS (6)
  - Vasculitis [Recovered/Resolved]
  - Demyelination [Recovered/Resolved]
  - Arrhythmia [Recovered/Resolved]
  - Cardiomyopathy [Recovered/Resolved]
  - Aphasia [Recovered/Resolved]
  - Renal impairment [Recovered/Resolved]
